FAERS Safety Report 9058570 (Version 1)
Quarter: 2013Q1

REPORT INFORMATION
  Report Type: Spontaneous
  Country: US (occurrence: US)
  Receive Date: 20130211
  Receipt Date: 20130211
  Transmission Date: 20140127
  Serious: Yes (Hospitalization)
  Sender: FDA-Public Use
  Company Number: PHEH2013US003221

PATIENT
  Age: 18 None
  Sex: Female
  Weight: 95 kg

DRUGS (11)
  1. TOBI [Suspect]
     Indication: CYSTIC FIBROSIS
  2. ADVAIR [Concomitant]
  3. ALBUTEROL [Concomitant]
  4. CREON [Concomitant]
  5. FLONASE [Concomitant]
  6. HUMALOG [Concomitant]
  7. IVACAFTOR [Concomitant]
  8. LEVEMIR [Concomitant]
  9. PROTONIX [Concomitant]
  10. PULMOZYME [Concomitant]
  11. SALINE [Concomitant]

REACTIONS (1)
  - Pneumonia [Unknown]
